FAERS Safety Report 5556127-4 (Version None)
Quarter: 2007Q4

REPORT INFORMATION
  Report Type: 
  Country: None (occurrence: None)
  Receive Date: 20071213
  Receipt Date: 20071203
  Transmission Date: 20080405
  Serious: Yes (Other)
  Sender: FDA-Public Use
  Company Number: US-MERCK-0409USA01947

PATIENT
  Age: 78 Year
  Sex: Female

DRUGS (2)
  1. ZOCOR [Suspect]
     Indication: BLOOD CHOLESTEROL INCREASED
     Route: 048
  2. ZETIA [Suspect]
     Route: 065

REACTIONS (7)
  - ABDOMINAL DISTENSION [None]
  - ASTHENIA [None]
  - DRUG HYPERSENSITIVITY [None]
  - MUSCLE INJURY [None]
  - PAIN [None]
  - PAIN IN EXTREMITY [None]
  - SPONDYLITIS [None]
